FAERS Safety Report 7392668-5 (Version None)
Quarter: 2011Q2

REPORT INFORMATION
  Report Type: 
  Country: None (occurrence: None)
  Receive Date: 20110404
  Receipt Date: 20110321
  Transmission Date: 20111010
  Serious: Yes (Hospitalization, Other)
  Sender: FDA-Public Use
  Company Number: NL-JNJFOC-20110308762

PATIENT
  Sex: Male
  Weight: 73 kg

DRUGS (10)
  1. SIMVASTATIN [Concomitant]
  2. INFLIXIMAB, RECOMBINANT [Suspect]
     Indication: RHEUMATOID ARTHRITIS
     Route: 042
  3. PERSANTINE [Concomitant]
     Dosage: FOR 2 WEEKS
  4. PERSANTINE [Concomitant]
  5. ASCAL [Concomitant]
     Dosage: 160 MG FOR 2 WEEKS
  6. DICLOFENAC [Concomitant]
     Indication: PAIN
  7. INFLIXIMAB, RECOMBINANT [Suspect]
     Route: 042
  8. METHOTREXATE [Suspect]
     Indication: RHEUMATOID ARTHRITIS
  9. ASCAL [Concomitant]
  10. FOLIC ACID [Concomitant]
     Indication: PROPHYLAXIS

REACTIONS (1)
  - TRANSIENT ISCHAEMIC ATTACK [None]
